FAERS Safety Report 11439377 (Version 1)
Quarter: 2015Q3

REPORT INFORMATION
  Report Type: Spontaneous
  Country: US (occurrence: US)
  Receive Date: 20150901
  Receipt Date: 20150901
  Transmission Date: 20151125
  Serious: Yes (Other)
  Sender: FDA-Public Use
  Company Number: US-ROCHE-1077822

PATIENT
  Age: 54 Year
  Sex: Male
  Weight: 80.36 kg

DRUGS (5)
  1. PEGASYS [Suspect]
     Active Substance: PEGINTERFERON ALFA-2A
     Route: 065
     Dates: end: 20120801
  2. PEGASYS [Suspect]
     Active Substance: PEGINTERFERON ALFA-2A
     Indication: CHRONIC HEPATITIS C
     Route: 058
     Dates: start: 20120225
  3. RIBASPHERE RIBAPAK [Concomitant]
     Active Substance: RIBAVIRIN
     Indication: CHRONIC HEPATITIS C
     Route: 048
     Dates: start: 20120224
  4. RIBASPHERE [Suspect]
     Active Substance: RIBAVIRIN
     Indication: CHRONIC HEPATITIS C
     Dosage: DIVEDED DOSES 600/600
     Route: 048
     Dates: start: 20120225
  5. PEGASYS [Suspect]
     Active Substance: PEGINTERFERON ALFA-2A
     Dosage: DOSE REDUCED
     Route: 065

REACTIONS (10)
  - Chest pain [Recovered/Resolved]
  - Thrombocytopenia [Unknown]
  - Fatigue [Unknown]
  - Visual impairment [Unknown]
  - Rash [Not Recovered/Not Resolved]
  - Depression [Unknown]
  - Muscle spasms [Unknown]
  - Therapeutic product ineffective [Unknown]
  - Diplopia [Unknown]
  - Gingival bleeding [Unknown]

NARRATIVE: CASE EVENT DATE: 201204
